FAERS Safety Report 5325607-9 (Version None)
Quarter: 2007Q2

REPORT INFORMATION
  Report Type: 
  Country: None (occurrence: None)
  Receive Date: 20070515
  Receipt Date: 20070508
  Transmission Date: 20071010
  Serious: Yes (Other)
  Sender: FDA-Public Use
  Company Number: US-PFIZER INC-2007020192

PATIENT
  Sex: Female

DRUGS (3)
  1. ZYVOX [Suspect]
     Indication: PNEUMONIA
     Route: 048
  2. ANTIBIOTICS [Suspect]
  3. LEVAQUIN [Concomitant]
     Route: 048

REACTIONS (2)
  - GUILLAIN-BARRE SYNDROME [None]
  - MECHANICAL VENTILATION [None]
